FAERS Safety Report 7831914-8 (Version None)
Quarter: 2011Q4

REPORT INFORMATION
  Report Type: 
  Country: None (occurrence: None)
  Receive Date: 20111021
  Receipt Date: 20111017
  Transmission Date: 20120403
  Serious: Yes (Life-Threatening, Other)
  Sender: FDA-Public Use
  Company Number: US-MERCK-1109USA03005

PATIENT
  Age: 36 Year
  Sex: Male

DRUGS (3)
  1. ALOXI [Concomitant]
     Route: 065
  2. IVEMEND [Suspect]
     Indication: PROPHYLAXIS OF NAUSEA AND VOMITING
     Route: 041
     Dates: start: 20110926, end: 20110926
  3. DEXAMETHASONE [Concomitant]
     Route: 065

REACTIONS (4)
  - HYPERSENSITIVITY [None]
  - RESPIRATORY ARREST [None]
  - HYPERHIDROSIS [None]
  - EYE MOVEMENT DISORDER [None]
